FAERS Safety Report 4446282-1 (Version None)
Quarter: 2004Q3

REPORT INFORMATION
  Report Type: 
  Country: None (occurrence: None)
  Receive Date: 20040907
  Receipt Date: 20040820
  Transmission Date: 20050211
  Serious: Yes (Other)
  Sender: FDA-Public Use
  Company Number: A0520250A

PATIENT
  Age: 30 Year
  Sex: Male

DRUGS (3)
  1. NICODERM CQ [Suspect]
     Indication: EX-SMOKER
     Dosage: 14 MG TRANSDERMAL
     Route: 062
     Dates: start: 20040630, end: 20040713
  2. NICODERM CQ [Suspect]
     Indication: EX-SMOKER
     Dosage: 7 MG TRANSDERMAL
     Route: 062
     Dates: start: 20040714, end: 20040727
  3. SALBUTAMOL SULPHATE [Concomitant]

REACTIONS (2)
  - ASTHMA [None]
  - CONDITION AGGRAVATED [None]
